FAERS Safety Report 16104812 (Version 1)
Quarter: 2019Q1

REPORT INFORMATION
  Report Type: Spontaneous
  Country: US (occurrence: US)
  Receive Date: 20190322
  Receipt Date: 20190322
  Transmission Date: 20190418
  Serious: Yes (Hospitalization)
  Sender: FDA-Public Use
  Company Number: US-ORPHAN EUROPE-2064409

PATIENT
  Age: 3 Month
  Sex: Female

DRUGS (1)
  1. CARBAGLU [Suspect]
     Active Substance: CARGLUMIC ACID
     Indication: ORNITHINE TRANSCARBAMOYLASE DEFICIENCY
     Dates: start: 20181211

REACTIONS (4)
  - Increased bronchial secretion [Unknown]
  - Gastrostomy [Unknown]
  - Off label use [Unknown]
  - Ophthalmological examination [Unknown]

NARRATIVE: CASE EVENT DATE: 20181211
